FAERS Safety Report 8929871 (Version 1)
Quarter: 2012Q4

REPORT INFORMATION
  Report Type: 
  Country: CA (occurrence: CA)
  Receive Date: 20121128
  Receipt Date: 20121128
  Transmission Date: 20130627
  Serious: Yes (Other)
  Sender: FDA-Public Use
  Company Number: CA-ROCHE-1161052

PATIENT
  Sex: Male
  Weight: 52.07 kg

DRUGS (3)
  1. XOLAIR [Suspect]
     Indication: PRODUCT USED FOR UNKNOWN INDICATION
     Route: 058
     Dates: start: 20061126
  2. XOLAIR [Suspect]
     Route: 058
     Dates: start: 20070108
  3. XOLAIR [Suspect]
     Route: 058
     Dates: start: 20080108

REACTIONS (6)
  - Pneumonia [Recovering/Resolving]
  - Hypersensitivity [Recovered/Resolved]
  - Gastroenteritis viral [Unknown]
  - Sinusitis [Recovered/Resolved]
  - Ear infection [Recovered/Resolved]
  - Pyrexia [Unknown]
